FAERS Safety Report 10435885 (Version 2)
Quarter: 2014Q3

REPORT INFORMATION
  Report Type: Spontaneous
  Country: JP (occurrence: JP)
  Receive Date: 20140908
  Receipt Date: 20140917
  Transmission Date: 20150326
  Serious: Yes (Other)
  Sender: FDA-Public Use
  Company Number: PHHY2014JP111544

PATIENT
  Age: 77 Year
  Sex: Male

DRUGS (3)
  1. RIVASTIGMIN [Suspect]
     Active Substance: RIVASTIGMINE
     Dosage: UKN
     Route: 062
  2. RIVASTIGMIN [Suspect]
     Active Substance: RIVASTIGMINE
     Dosage: 13.5 MG, DAILY
     Route: 062
  3. RIVASTIGMIN [Suspect]
     Active Substance: RIVASTIGMINE
     Dosage: 9 MG, DAILY
     Route: 062

REACTIONS (7)
  - Amnesia [Unknown]
  - Poriomania [Unknown]
  - Intentional self-injury [Unknown]
  - Fall [Unknown]
  - Memory impairment [Unknown]
  - Road traffic accident [Unknown]
  - Aggression [Unknown]
